FAERS Safety Report 13365557 (Version 1)
Quarter: 2017Q1

REPORT INFORMATION
  Report Type: Spontaneous
  Country: US (occurrence: US)
  Receive Date: 20170323
  Receipt Date: 20170323
  Transmission Date: 20170429
  Serious: Yes (Hospitalization)
  Sender: FDA-Public Use
  Company Number: US-ROCHE-1905523

PATIENT
  Age: 86 Year
  Sex: Female
  Weight: 40.86 kg

DRUGS (1)
  1. TECENTRIQ [Suspect]
     Active Substance: ATEZOLIZUMAB
     Indication: BLADDER CANCER
     Dosage: INDICATION 2: TUMOR BEHIND THE KIDNEY?RECEIVED 2 ROUNDS OF THE MEDICATION
     Route: 065
     Dates: start: 201701, end: 201702

REACTIONS (1)
  - Renal failure [Not Recovered/Not Resolved]

NARRATIVE: CASE EVENT DATE: 201702
